FAERS Safety Report 11042881 (Version 2)
Quarter: 2015Q3

REPORT INFORMATION
  Report Type: Report from Study
  Country: ZA (occurrence: ZA)
  Receive Date: 20150417
  Receipt Date: 20150925
  Transmission Date: 20151125
  Serious: Yes (Hospitalization)
  Sender: FDA-Public Use
  Company Number: ZA-ROCHE-1564061

PATIENT
  Age: 53 Year
  Sex: Female

DRUGS (11)
  1. ACTEMRA [Suspect]
     Active Substance: TOCILIZUMAB
     Indication: RHEUMATOID ARTHRITIS
     Route: 042
     Dates: start: 20110512
  2. FOLIC ACID. [Concomitant]
     Active Substance: FOLIC ACID
     Route: 048
  3. PREDNISONE. [Concomitant]
     Active Substance: PREDNISONE
     Dosage: IN THE MORNING ON ALTERNATE DAYS
     Route: 048
  4. COXFLAM [Concomitant]
     Active Substance: MELOXICAM
     Dosage: ONCE IN A DAY AS REQUIRED
     Route: 048
  5. ACTEMRA [Suspect]
     Active Substance: TOCILIZUMAB
     Route: 042
     Dates: start: 201306
  6. ALTOSEC [Concomitant]
     Active Substance: OMEPRAZOLE
     Dosage: IN THE MORNING
     Route: 048
  7. TREPILINE [Concomitant]
     Active Substance: AMITRIPTYLINE
     Dosage: AT NIGHT
     Route: 048
  8. DORMONOCT [Concomitant]
     Active Substance: LOPRAZOLAM
     Dosage: AT NIGHT
     Route: 048
  9. VALPROATE SODIUM. [Concomitant]
     Active Substance: VALPROATE SODIUM
     Dosage: EPILIZINE CR 500, 500MG TWICE DAILY
     Route: 048
  10. INDAPAMIDE. [Concomitant]
     Active Substance: INDAPAMIDE
     Dosage: IN THE MORNING
     Route: 048
  11. ESCITALOPRAM [Concomitant]
     Active Substance: ESCITALOPRAM OXALATE
     Dosage: LEXAMIL, IN THE MORNING
     Route: 048

REACTIONS (2)
  - Meningioma [Unknown]
  - Seizure [Unknown]

NARRATIVE: CASE EVENT DATE: 20150327
